FAERS Safety Report 6862087-6 (Version None)
Quarter: 2010Q3

REPORT INFORMATION
  Report Type: 
  Country: None (occurrence: None)
  Receive Date: 20100719
  Receipt Date: 20100706
  Transmission Date: 20110219
  Serious: Yes (Hospitalization, Disabling)
  Sender: FDA-Public Use
  Company Number: 232757J08USA

PATIENT
  Age: 42 Year
  Sex: Female
  Weight: 82 kg

DRUGS (5)
  1. REBIF [Suspect]
     Indication: RELAPSING-REMITTING MULTIPLE SCLEROSIS
     Dosage: 44 MCG, 3 IN 1 WK, SUBCUTANEOUS, 22 MCG,
     Route: 058
     Dates: start: 20061103, end: 20080402
  2. REBIF [Suspect]
     Indication: RELAPSING-REMITTING MULTIPLE SCLEROSIS
     Dosage: 44 MCG, 3 IN 1 WK, SUBCUTANEOUS, 22 MCG,
     Route: 058
     Dates: start: 20080402, end: 20081201
  3. REBIF [Suspect]
     Indication: RELAPSING-REMITTING MULTIPLE SCLEROSIS
     Dosage: 44 MCG, 3 IN 1 WK, SUBCUTANEOUS, 22 MCG,
     Route: 058
     Dates: start: 20081201, end: 20090901
  4. KEPPRA [Suspect]
     Dates: start: 20070701, end: 20070101
  5. ORTHO NOVUM (CONLUNETT) [Concomitant]

REACTIONS (2)
  - PANCREATIC CYST [None]
  - PANCREATITIS [None]
